FAERS Safety Report 4737500-0 (Version None)
Quarter: 2005Q3

REPORT INFORMATION
  Report Type: 
  Country: None (occurrence: None)
  Receive Date: 20050809
  Receipt Date: 20050720
  Transmission Date: 20060218
  Serious: No
  Sender: FDA-Public Use
  Company Number: US-GLAXOSMITHKLINE-A0567000A

PATIENT
  Age: 41 Year
  Sex: Male

DRUGS (1)
  1. COMMIT [Suspect]

REACTIONS (6)
  - ACCIDENTAL EXPOSURE [None]
  - DRUG ABUSER [None]
  - DRUG WITHDRAWAL SYNDROME [None]
  - FEELING JITTERY [None]
  - MENTAL IMPAIRMENT [None]
  - TREMOR [None]
